FAERS Safety Report 5287415-7 (Version None)
Quarter: 2007Q1

REPORT INFORMATION
  Report Type: 
  Country: None (occurrence: None)
  Receive Date: 20070116
  Receipt Date: 20060926
  Transmission Date: 20070707
  Serious: No
  Sender: FDA-Public Use
  Company Number: 2006SP003433

PATIENT
  Age: 22 Year
  Sex: Female
  Weight: 77.1115 kg

DRUGS (3)
  1. LUNESTA [Suspect]
     Indication: INSOMNIA
     Dosage: 2 MG; PRN; ORAL : 2 MG; HS; ORAL
     Route: 048
     Dates: start: 20060101, end: 20060901
  2. LUNESTA [Suspect]
     Indication: INSOMNIA
     Dosage: 2 MG; PRN; ORAL : 2 MG; HS; ORAL
     Route: 048
     Dates: start: 20060901
  3. AMITRIPTYLINE HCL [Concomitant]

REACTIONS (3)
  - DRUG INEFFECTIVE [None]
  - INITIAL INSOMNIA [None]
  - WEIGHT INCREASED [None]
